FAERS Safety Report 9289091 (Version 3)
Quarter: 2013Q2

REPORT INFORMATION
  Report Type: Spontaneous
  Country: ES (occurrence: ES)
  Receive Date: 20130514
  Receipt Date: 20130621
  Transmission Date: 20140414
  Serious: Yes (Hospitalization)
  Sender: FDA-Public Use
  Company Number: ES-009507513-1304ESP003614

PATIENT
  Age: 64 Year
  Sex: Female
  Weight: 62 kg

DRUGS (9)
  1. TEMODAL [Suspect]
     Indication: PANCREATIC NEUROENDOCRINE TUMOUR
     Dosage: TOTAL DAILY DOSE 240 MG, QD, STRENGTH 140MG+100MG
     Route: 048
     Dates: start: 20130406
  2. XELODA [Concomitant]
     Indication: NEOPLASM MALIGNANT
     Dosage: 650 MG, BID, IN CYCLES OF 14 DAYS (14 DAYS OF TREATMENT-THEN 14 DAYS OF REST AND SO ON)
     Route: 048
     Dates: start: 20130328
  3. DIAZOXIDE [Concomitant]
     Indication: HYPOGLYCAEMIA
     Dosage: 100 MG, TID
     Route: 048
     Dates: start: 201211
  4. FORTECORTIN [Concomitant]
     Indication: HYPOGLYCAEMIA
     Dosage: 1 MG, BID,
     Route: 048
     Dates: start: 201212, end: 201304
  5. FORTECORTIN [Concomitant]
     Dosage: 1 MG, QPM, 0-0-1
     Route: 048
     Dates: start: 201304
  6. ESCITALOPRAM [Concomitant]
     Indication: ANXIETY
     Dosage: 10MG DAILY
     Route: 048
     Dates: start: 2010
  7. LEVOTHYROXINE SODIUM [Concomitant]
     Indication: HYPOTHYROIDISM
     Dosage: 75 MICROGRAM, QAM, 1-0-0
     Route: 048
     Dates: start: 2010
  8. SANDOSTATIN [Concomitant]
     Indication: NEOPLASM MALIGNANT
     Dosage: 50MG, MONTHLY, EVERY 28 DAYS
     Route: 030
     Dates: start: 2010
  9. BOI-K [Concomitant]
     Dosage: 1-0-1

REACTIONS (5)
  - Optic neuritis [Recovering/Resolving]
  - Nausea [Recovered/Resolved]
  - Vomiting [Recovered/Resolved]
  - Off label use [Unknown]
  - Eye disorder [Unknown]
